FAERS Safety Report 5584741-9 (Version None)
Quarter: 2008Q1

REPORT INFORMATION
  Report Type: 
  Country: None (occurrence: None)
  Receive Date: 20080108
  Receipt Date: 20080102
  Transmission Date: 20080703
  Serious: Yes (Other)
  Sender: FDA-Public Use
  Company Number: FR-PFIZER INC-2008001203

PATIENT
  Sex: Male

DRUGS (6)
  1. TRIFLUCAN [Suspect]
     Indication: INFECTION
     Route: 042
     Dates: start: 20071226, end: 20080101
  2. GENTAMICIN [Concomitant]
     Dates: start: 20071220, end: 20071225
  3. TAZOCILLINE [Concomitant]
     Dates: start: 20071220, end: 20071225
  4. AMIKLIN [Concomitant]
  5. TIENAM [Concomitant]
  6. VANCOMYCIN HYDROCHLORIDE [Concomitant]

REACTIONS (2)
  - PYREXIA [None]
  - RASH MACULO-PAPULAR [None]
